FAERS Safety Report 19942307 (Version 2)
Quarter: 2021Q4

REPORT INFORMATION
  Report Type: Spontaneous
  Country: JP (occurrence: JP)
  Receive Date: 20211012
  Receipt Date: 20211019
  Transmission Date: 20220303
  Serious: Yes (Hospitalization, Other)
  Sender: FDA-Public Use
  Company Number: JP-BRISTOL-MYERS SQUIBB COMPANY-BMS-2021-102703

PATIENT
  Age: 94 Year
  Sex: Female

DRUGS (1)
  1. ELIQUIS [Suspect]
     Active Substance: APIXABAN
     Indication: Cerebrovascular accident prophylaxis
     Dosage: 2.5 MILLIGRAM
     Route: 048

REACTIONS (7)
  - Traumatic haemorrhage [Recovered/Resolved]
  - Fall [Unknown]
  - Lumbar vertebral fracture [Unknown]
  - Rectal ulcer [Unknown]
  - Melaena [Recovered/Resolved]
  - Constipation [Unknown]
  - Haemoglobin decreased [Unknown]
